FAERS Safety Report 19236643 (Version 1)
Quarter: 2021Q2

REPORT INFORMATION
  Report Type: Spontaneous
  Country: US (occurrence: US)
  Receive Date: 20210507
  Receipt Date: 20210507
  Transmission Date: 20210717
  Serious: Yes (Hospitalization)
  Sender: FDA-Public Use
  Company Number: None

PATIENT
  Age: 64 Year
  Sex: Female

DRUGS (13)
  1. TRIKAFTA [Suspect]
     Active Substance: ELEXACAFTOR\IVACAFTOR\TEZACAFTOR
     Indication: CYSTIC FIBROSIS
     Route: 048
     Dates: start: 20191122
  2. TYLENOL [Concomitant]
     Active Substance: ACETAMINOPHEN
  3. PROAIR INHALER [Concomitant]
     Active Substance: ALBUTEROL SULFATE
  4. LEVOTHYROXINE. [Concomitant]
     Active Substance: LEVOTHYROXINE
  5. MONTELUKAST [Concomitant]
     Active Substance: MONTELUKAST SODIUM
  6. BUDESONIDE. [Concomitant]
     Active Substance: BUDESONIDE
  7. PULMOZYME [Concomitant]
     Active Substance: DORNASE ALFA
  8. AZITHROMYCIN ANHYDROUS. [Concomitant]
     Active Substance: AZITHROMYCIN ANHYDROUS
  9. FINASTERIDE. [Concomitant]
     Active Substance: FINASTERIDE
  10. ADVAIR HFA [Concomitant]
     Active Substance: FLUTICASONE PROPIONATE\SALMETEROL XINAFOATE
  11. MINOXIDIL. [Concomitant]
     Active Substance: MINOXIDIL
  12. TOBRAMYCIN. [Concomitant]
     Active Substance: TOBRAMYCIN
  13. CAYSTON [Concomitant]
     Active Substance: AZTREONAM

REACTIONS (1)
  - Pneumonia [None]

NARRATIVE: CASE EVENT DATE: 20210426
